FAERS Safety Report 7425468-8 (Version None)
Quarter: 2011Q2

REPORT INFORMATION
  Report Type: 
  Country: None (occurrence: None)
  Receive Date: 20110418
  Receipt Date: 20110418
  Transmission Date: 20111010
  Serious: Yes (Life-Threatening, Hospitalization)
  Sender: FDA-Public Use
  Company Number: None

PATIENT
  Age: 52 Year
  Sex: Male
  Weight: 90 kg

DRUGS (2)
  1. PRIVIGEN [Suspect]
     Indication: IDIOPATHIC THROMBOCYTOPENIC PURPURA
     Dosage: 100GM ONCE IV; 100GM ONCE IV
     Route: 042
     Dates: start: 20110303, end: 20110303
  2. PRIVIGEN [Suspect]
     Indication: IDIOPATHIC THROMBOCYTOPENIC PURPURA
     Dosage: 100GM ONCE IV; 100GM ONCE IV
     Route: 042
     Dates: start: 20110304, end: 20110304

REACTIONS (2)
  - FATIGUE [None]
  - PALLOR [None]
